FAERS Safety Report 12683883 (Version 1)
Quarter: 2016Q3

REPORT INFORMATION
  Report Type: Spontaneous
  Country: BR (occurrence: BR)
  Receive Date: 20160825
  Receipt Date: 20160825
  Transmission Date: 20161109
  Serious: Yes (Other)
  Sender: FDA-Public Use
  Company Number: BR-PFIZER INC-2016392380

PATIENT
  Age: 71 Year
  Sex: Female

DRUGS (2)
  1. OCUPRESS /01264102/ [Concomitant]
     Indication: INTRAOCULAR PRESSURE INCREASED
     Dosage: 1 DROP IN  BOTH EYES, UNK
     Route: 047
     Dates: start: 20160702
  2. XALATAN [Suspect]
     Active Substance: LATANOPROST
     Indication: INTRAOCULAR PRESSURE INCREASED
     Dosage: 1 DROP ON BOTH EYES, UNK
     Route: 047
     Dates: end: 20160814

REACTIONS (9)
  - Intraocular pressure increased [Unknown]
  - Cataract [Unknown]
  - Head discomfort [Unknown]
  - Drug intolerance [Unknown]
  - Eye irritation [Unknown]
  - Visual impairment [Unknown]
  - Vision blurred [Unknown]
  - Foreign body sensation in eyes [Unknown]
  - Ocular discomfort [Unknown]
